FAERS Safety Report 7224200-0 (Version None)
Quarter: 2011Q1

REPORT INFORMATION
  Report Type: 
  Country: None (occurrence: None)
  Receive Date: 20110106
  Receipt Date: 20110106
  Transmission Date: 20110831
  Serious: Yes (Life-Threatening, Hospitalization)
  Sender: FDA-Public Use
  Company Number: None

PATIENT
  Age: 63 Year
  Sex: Female
  Weight: 86.1834 kg

DRUGS (1)
  1. FLECAINIDE ACETATE [Suspect]
     Indication: HEART RATE IRREGULAR
     Dosage: 100 MG  2X DAY ORAL
     Route: 048

REACTIONS (6)
  - HEART RATE IRREGULAR [None]
  - MYOCARDIAL INFARCTION [None]
  - CHEST PAIN [None]
  - HYPERHIDROSIS [None]
  - REFUSAL OF TREATMENT BY PATIENT [None]
  - HEART RATE DECREASED [None]
